FAERS Safety Report 5364906-1 (Version None)
Quarter: 2007Q2

REPORT INFORMATION
  Report Type: 
  Country: None (occurrence: None)
  Receive Date: 20070530
  Receipt Date: 20070125
  Transmission Date: 20071010
  Serious: No
  Sender: FDA-Public Use
  Company Number: 2007PV028999

PATIENT
  Age: 37 Year
  Sex: Female
  Weight: 90.2658 kg

DRUGS (4)
  1. BYETTA [Suspect]
     Indication: DIABETES MELLITUS NON-INSULIN-DEPENDENT
     Dosage: 5 MCG;BID;SC
     Route: 058
     Dates: start: 20070125
  2. METFORMIN HCL [Concomitant]
  3. AMARYL [Concomitant]
  4. FISH OIL [Concomitant]

REACTIONS (7)
  - ABDOMINAL DISTENSION [None]
  - CONDITION AGGRAVATED [None]
  - DECREASED APPETITE [None]
  - DRY MOUTH [None]
  - INFREQUENT BOWEL MOVEMENTS [None]
  - INJECTION SITE BRUISING [None]
  - THIRST [None]
